FAERS Safety Report 6621670-3 (Version None)
Quarter: 2010Q1

REPORT INFORMATION
  Report Type: 
  Country: None (occurrence: None)
  Receive Date: 20100309
  Receipt Date: 20100303
  Transmission Date: 20100710
  Serious: Yes (Disabling)
  Sender: FDA-Public Use
  Company Number: GB-WYE-G05629210

PATIENT
  Sex: Male

DRUGS (4)
  1. GEMTUZUMAB OZOGAMICIN [Suspect]
     Indication: ACUTE MYELOID LEUKAEMIA
     Dosage: UNKNOWN
     Route: 042
     Dates: start: 20090915, end: 20091221
  2. DAUNORUBICIN [Suspect]
     Dosage: UNKNOWN
     Route: 042
     Dates: start: 20090915
  3. DAUNORUBICIN [Suspect]
     Dosage: THIRD CYCLE OFF PROTOCOL
     Route: 042
  4. ARA-C [Suspect]
     Dosage: UNKNOWN
     Route: 042
     Dates: start: 20090915, end: 20091221

REACTIONS (1)
  - TENOSYNOVITIS [None]
